FAERS Safety Report 13384844 (Version 1)
Quarter: 2017Q1

REPORT INFORMATION
  Report Type: Spontaneous
  Country: CA (occurrence: US)
  Receive Date: 20170330
  Receipt Date: 20170330
  Transmission Date: 20170429
  Serious: Yes (Hospitalization)
  Sender: FDA-Public Use
  Company Number: None

PATIENT
  Age: 55 Year
  Sex: Female
  Weight: 55.2 kg

DRUGS (1)
  1. CISPLATIN. [Suspect]
     Active Substance: CISPLATIN
     Dates: end: 20170314

REACTIONS (4)
  - Fatigue [None]
  - Feeding disorder [None]
  - Fluid intake reduced [None]
  - Impaired self-care [None]

NARRATIVE: CASE EVENT DATE: 20170316
